FAERS Safety Report 22849489 (Version 4)
Quarter: 2023Q4

REPORT INFORMATION
  Report Type: Spontaneous
  Country: AT (occurrence: None)
  Receive Date: 20230822
  Receipt Date: 20231010
  Transmission Date: 20240110
  Serious: Yes (Other)
  Sender: FDA-Public Use
  Company Number: 2023A185368

PATIENT
  Sex: Female

DRUGS (6)
  1. FULVESTRANT [Suspect]
     Active Substance: FULVESTRANT
     Indication: Invasive breast carcinoma
     Dosage: 500 MG
     Route: 030
     Dates: start: 202210, end: 202302
  2. CAPECITABINE [Suspect]
     Active Substance: CAPECITABINE
     Indication: Product used for unknown indication
     Dosage: UNK
  3. KISQALI [Suspect]
     Active Substance: RIBOCICLIB
     Indication: Invasive breast carcinoma
     Dosage: 200 MG
     Route: 048
     Dates: start: 20221107, end: 202302
  4. DENOSUMAB [Concomitant]
     Active Substance: DENOSUMAB
     Indication: Invasive breast carcinoma
     Dosage: 120 MG
     Route: 058
     Dates: start: 202210
  5. DENOSUMAB [Concomitant]
     Active Substance: DENOSUMAB
     Indication: Invasive breast carcinoma
     Dosage: UNK
  6. DENOSUMAB [Concomitant]
     Active Substance: DENOSUMAB
     Indication: Invasive breast carcinoma
     Dosage: UNK

REACTIONS (2)
  - Malignant neoplasm progression [Unknown]
  - Invasive breast carcinoma [Unknown]

NARRATIVE: CASE EVENT DATE: 20230201
